FAERS Safety Report 7992285-X (Version None)
Quarter: 2011Q4

REPORT INFORMATION
  Report Type: 
  Country: None (occurrence: None)
  Receive Date: 20111219
  Receipt Date: 20110527
  Transmission Date: 20120403
  Serious: No
  Sender: FDA-Public Use
  Company Number: US-ASTRAZENECA-2011SE33281

PATIENT
  Age: 59 Year
  Sex: Female

DRUGS (6)
  1. CRESTOR [Suspect]
     Route: 048
  2. PERCOCET [Concomitant]
  3. COUMADIN [Concomitant]
  4. CRESTOR [Suspect]
     Route: 048
     Dates: start: 20110214
  5. CRESTOR [Suspect]
     Route: 048
  6. ACETAMINOPHEN [Concomitant]

REACTIONS (11)
  - SLEEP DISORDER DUE TO A GENERAL MEDICAL CONDITION [None]
  - MALAISE [None]
  - HYPERSENSITIVITY [None]
  - FATIGUE [None]
  - PAIN IN EXTREMITY [None]
  - SUNBURN [None]
  - MUSCULAR WEAKNESS [None]
  - TENDON INJURY [None]
  - PHOTOSENSITIVITY REACTION [None]
  - INTERMITTENT CLAUDICATION [None]
  - JOINT DISLOCATION [None]
